FAERS Safety Report 7824270-2 (Version None)
Quarter: 2011Q4

REPORT INFORMATION
  Report Type: 
  Country: None (occurrence: None)
  Receive Date: 20111019
  Receipt Date: 20111017
  Transmission Date: 20120403
  Serious: No
  Sender: FDA-Public Use
  Company Number: US-B.I. PHARMACEUTICALS,INC./RIDGEFIELD-2011-BP-20924BP

PATIENT
  Sex: Male

DRUGS (23)
  1. PRADAXA [Suspect]
     Dosage: 150 MG
     Route: 048
     Dates: start: 20110914
  2. METOPROLOL TARTRATE [Concomitant]
     Indication: HYPERTENSION
     Dosage: 100 MG
     Route: 048
  3. ALLOPURINOL [Concomitant]
     Dosage: 300 MG
     Route: 048
  4. CILOSTAZOL [Concomitant]
     Dosage: 200 MG
     Route: 048
  5. FINASTERIDE [Concomitant]
     Dosage: 5 MG
  6. DYRENIUM [Concomitant]
     Route: 048
  7. DIGOXIN [Concomitant]
     Indication: HYPERTENSION
     Dosage: 0.3125 MG
     Route: 048
  8. VITAMIN D [Concomitant]
     Indication: SUPPLEMENTATION THERAPY
     Route: 048
  9. BENICAR [Concomitant]
     Dosage: 5 MG
     Route: 048
  10. SPIRIVA [Concomitant]
     Indication: ASTHMA
     Dosage: 18 MCG
     Route: 055
  11. VITAMIN B COMPLEX CAP [Concomitant]
     Indication: SUPPLEMENTATION THERAPY
  12. PRADAXA [Suspect]
     Indication: ATRIAL FIBRILLATION
     Dosage: 300 MG
     Route: 048
     Dates: start: 20110101, end: 20110826
  13. KLOR-CON [Concomitant]
     Indication: SUPPLEMENTATION THERAPY
     Dosage: 20 MG
     Route: 048
  14. OMEPRAZOLE [Concomitant]
     Indication: GASTROOESOPHAGEAL REFLUX DISEASE
     Dosage: 20 MG
     Route: 048
  15. VYTORIN [Concomitant]
     Indication: BLOOD CHOLESTEROL INCREASED
     Route: 048
  16. ASCORBIC ACID [Concomitant]
     Indication: SUPPLEMENTATION THERAPY
     Route: 048
  17. PROAIR HFA [Concomitant]
     Indication: ASTHMA
  18. PRADAXA [Suspect]
     Indication: ANTICOAGULANT THERAPY
     Dosage: 300 MG
     Route: 048
     Dates: start: 20110830, end: 20110914
  19. FUROSEMIDE [Concomitant]
     Indication: CARDIAC FAILURE
     Dosage: 160 MG
     Route: 048
  20. FUROSEMIDE [Concomitant]
     Route: 048
  21. MAGOXIDE [Concomitant]
     Indication: SUPPLEMENTATION THERAPY
     Dosage: 400 MG
     Route: 048
  22. NASONEX [Concomitant]
     Route: 045
  23. PHENAZOPYRIDINE HCL TAB [Concomitant]

REACTIONS (2)
  - BLOOD URINE PRESENT [None]
  - HAEMATURIA [None]
